FAERS Safety Report 17440032 (Version 10)
Quarter: 2021Q3

REPORT INFORMATION
  Report Type: Spontaneous
  Country: US (occurrence: US)
  Receive Date: 20200220
  Receipt Date: 20210825
  Transmission Date: 20211014
  Serious: Yes (Hospitalization, Other)
  Sender: FDA-Public Use
  Company Number: US-PFIZER INC-2020073893

PATIENT
  Age: 74 Year
  Sex: Male
  Weight: 90 kg

DRUGS (36)
  1. XELJANZ [Suspect]
     Active Substance: TOFACITINIB CITRATE
     Dosage: 5 MG, 2X/DAY (5 MG IN THE MORNING AND 5 MG AT NIGHT )
     Route: 048
     Dates: start: 201911
  2. XELJANZ [Suspect]
     Active Substance: TOFACITINIB CITRATE
     Dosage: 5 MG, 2X/DAY
     Route: 048
     Dates: start: 20191120
  3. NEXIUM 24HR [Concomitant]
     Active Substance: ESOMEPRAZOLE MAGNESIUM
     Dosage: 22.5 MG, 1X/DAY
     Route: 048
  4. VITAMIN C [Concomitant]
     Active Substance: ASCORBIC ACID
     Indication: SUPPLEMENTATION THERAPY
     Dosage: 1000 MG, 1X/DAY (1 AFTER BREAKFAST)
     Route: 048
  5. FINASTERIDE. [Concomitant]
     Active Substance: FINASTERIDE
     Indication: PROSTATOMEGALY
     Dosage: 0.5 MG, 1X/DAY
  6. TYLENOL 8HR [Concomitant]
     Active Substance: ACETAMINOPHEN
     Indication: ARTHRITIS
     Dosage: 1950 MG, AS NEEDED
  7. LACTAID FAST ACT [Concomitant]
     Active Substance: LACTASE
     Dosage: UNK, (2 CHEWABLES PRIOR TO EATING OR DRINKING DAIRY AS NEEDED)
  8. XELJANZ [Suspect]
     Active Substance: TOFACITINIB CITRATE
     Dosage: 5 MG, 2X/DAY
     Route: 048
     Dates: start: 20190919
  9. VITAMIN D3 [Concomitant]
     Active Substance: CHOLECALCIFEROL
     Dosage: 50 UG, 1X/DAY
     Route: 048
  10. FINASTERIDE. [Concomitant]
     Active Substance: FINASTERIDE
     Dosage: 5 MG, 1X/DAY, (5MG BY MOUTH AT BEDTIME)
     Route: 048
  11. DESITIN CREAMY [Concomitant]
     Indication: RECTAL HAEMORRHAGE
     Dosage: UNK, AS NEEDED
  12. GLUCOSAMINE/CHONDROITIN [CHONDROITIN SULFATE;GLUCOSAMINE] [Concomitant]
     Indication: ARTHROPATHY
     Dosage: 3000 MG, DAILY (2 1500MG TABLETS)
     Route: 048
  13. FUROSEMIDE. [Concomitant]
     Active Substance: FUROSEMIDE
     Indication: SWELLING
     Dosage: 20 MG, 1X/DAY
     Dates: start: 20200107
  14. CENTRUM SILVER [ASCORBIC ACID;CALCIUM;MINERALS NOS;RETINOL;TOCOPHERYL [Concomitant]
     Indication: SUPPLEMENTATION THERAPY
     Dosage: 1 DF, 1X/DAY (AFTER BREAKFAST)
     Route: 048
  15. FLOMAX [Concomitant]
     Active Substance: TAMSULOSIN HYDROCHLORIDE
     Indication: PROSTATOMEGALY
     Dosage: 0.4 MG, 1X/DAY
     Route: 048
  16. TURMERIC CURCUMIN [Concomitant]
     Active Substance: HERBALS\TURMERIC
     Indication: SUPPLEMENTATION THERAPY
     Dosage: 500 MG, 1X/DAY
  17. GINGER ROOT SUNDOWN [Concomitant]
     Indication: SUPPLEMENTATION THERAPY
     Dosage: 550 MG, 1X/DAY
     Route: 048
  18. LEVOTHYROXINE. [Concomitant]
     Active Substance: LEVOTHYROXINE
     Indication: HYPOTHYROIDISM
     Dosage: 50 UG, 1X/DAY  (EARLY A.M)
     Route: 048
  19. PROBIOTIC ACIDOPHILUS [LACTOBACILLUS ACIDOPHILUS] [Concomitant]
     Dosage: 2 DF
  20. VITAMIN B12 [Concomitant]
     Active Substance: CYANOCOBALAMIN
     Dosage: 3000 UG, 1X/DAY
     Route: 048
  21. LACTAID FAST ACT [Concomitant]
     Active Substance: LACTASE
     Indication: LACTOSE INTOLERANCE
     Dosage: 9000 IU, AS NEEDED
  22. LEVSIN [Concomitant]
     Active Substance: HYOSCYAMINE SULFATE
     Indication: MUSCLE SPASMS
     Dosage: 0.125 MG, AS NEEDED
  23. XELJANZ [Suspect]
     Active Substance: TOFACITINIB CITRATE
     Indication: ARTHRITIS
     Dosage: 10 MG, 2X/DAY
     Route: 048
     Dates: start: 20190919, end: 201911
  24. XELJANZ [Suspect]
     Active Substance: TOFACITINIB CITRATE
     Dosage: 10 MG
  25. PROZAC [Concomitant]
     Active Substance: FLUOXETINE HYDROCHLORIDE
     Dosage: UNK
     Dates: end: 20200204
  26. PROBIOTIC ACIDOPHILUS [LACTOBACILLUS ACIDOPHILUS] [Concomitant]
     Indication: SUPPLEMENTATION THERAPY
     Dosage: 2 DF, DAILY
  27. VITAMIN D3 [Concomitant]
     Active Substance: CHOLECALCIFEROL
     Indication: SUPPLEMENTATION THERAPY
     Dosage: 100 UG, DAILY (GUMMIES 2 AFTER BREAKFAST)
  28. OMEGA 3 FISH OIL [FISH OIL] [Concomitant]
     Indication: SUPPLEMENTATION THERAPY
     Dosage: 1500 MG, 1X/DAY
     Route: 048
  29. XELJANZ [Suspect]
     Active Substance: TOFACITINIB CITRATE
     Dosage: 5 MG, 2X/DAY (5 MG IN THE MORNING AND 5 MG AT NIGHT )
     Route: 048
     Dates: start: 201909
  30. FLUOXETINE [Concomitant]
     Active Substance: FLUOXETINE HYDROCHLORIDE
     Indication: ANXIETY
     Dosage: 20 MG, 1X/DAY (AT BED TIME BY MOUTH)
     Route: 048
     Dates: end: 20200204
  31. NEXIUM 24HR [Concomitant]
     Active Substance: ESOMEPRAZOLE MAGNESIUM
     Indication: GASTROOESOPHAGEAL REFLUX DISEASE
     Dosage: 20 MG, 1X/DAY (1?20 MG CAP AM BEFORE)
  32. XELJANZ [Suspect]
     Active Substance: TOFACITINIB CITRATE
     Indication: COLITIS ULCERATIVE
     Dosage: 5 MG, 2X/DAY (10 MG 1/2 TABLET TWICE A DAY)
     Route: 048
  33. CALMOSEPTINE [MENTHOL;ZINC OXIDE] [Concomitant]
     Dosage: UNK, AS NEEDED
     Route: 061
  34. NAPROXEN. [Concomitant]
     Active Substance: NAPROXEN
     Indication: ARTHRALGIA
     Dosage: 500 MG, 1X/DAY
     Route: 048
     Dates: start: 20200107, end: 20200201
  35. FERROUS SULFATE. [Concomitant]
     Active Substance: FERROUS SULFATE
     Indication: CONSTIPATION
     Dosage: 324 MG, 1X/DAY
     Route: 048
     Dates: start: 20200124, end: 20200201
  36. VITAMIN B12 [Concomitant]
     Active Substance: CYANOCOBALAMIN
     Indication: SUPPLEMENTATION THERAPY
     Dosage: 3000 UG, DAILY (GUMMIES 3 AFTER BREAKFAST)
     Route: 048

REACTIONS (20)
  - COVID-19 [Unknown]
  - Decreased immune responsiveness [Not Recovered/Not Resolved]
  - Stenosis [Unknown]
  - Haematochezia [Not Recovered/Not Resolved]
  - Condition aggravated [Not Recovered/Not Resolved]
  - Asthenia [Not Recovered/Not Resolved]
  - Fatigue [Not Recovered/Not Resolved]
  - Arthralgia [Not Recovered/Not Resolved]
  - White blood cell count decreased [Recovering/Resolving]
  - Haematocrit decreased [Not Recovered/Not Resolved]
  - Nerve compression [Unknown]
  - Back disorder [Unknown]
  - Malignant melanoma [Unknown]
  - Muscle spasms [Not Recovered/Not Resolved]
  - Pain [Not Recovered/Not Resolved]
  - Haemoglobin decreased [Not Recovered/Not Resolved]
  - Red blood cell count decreased [Not Recovered/Not Resolved]
  - Peripheral swelling [Unknown]
  - Joint swelling [Unknown]
  - Malaise [Unknown]

NARRATIVE: CASE EVENT DATE: 2018
